FAERS Safety Report 4498609-2 (Version None)
Quarter: 2004Q4

REPORT INFORMATION
  Report Type: 
  Country: None (occurrence: None)
  Receive Date: 20041108
  Receipt Date: 20041028
  Transmission Date: 20050328
  Serious: Yes (Hospitalization)
  Sender: FDA-Public Use
  Company Number: 2004-BP-05345BP

PATIENT
  Age: 94 Year
  Sex: Male
  Weight: 54.4 kg

DRUGS (3)
  1. FLOMAX [Suspect]
     Indication: URINARY RETENTION
     Dosage: 0.4 MG (0.4 MG), PO
     Route: 048
     Dates: start: 20040301
  2. KLONOPIN [Concomitant]
  3. BUSPAR [Concomitant]

REACTIONS (6)
  - CATHETER RELATED INFECTION [None]
  - DYSURIA [None]
  - NAUSEA [None]
  - POLLAKIURIA [None]
  - POST PROCEDURAL COMPLICATION [None]
  - URINARY RETENTION [None]
